FAERS Safety Report 11854481 (Version 1)
Quarter: 2015Q4

REPORT INFORMATION
  Report Type: Spontaneous
  Country: CH (occurrence: CH)
  Receive Date: 20151221
  Receipt Date: 20151221
  Transmission Date: 20160305
  Serious: Yes (Hospitalization, Other)
  Sender: FDA-Public Use
  Company Number: CH-009507513-1512CHE009253

PATIENT
  Age: 47 Year
  Sex: Female

DRUGS (4)
  1. QUETIAPINE FUMARATE. [Suspect]
     Active Substance: QUETIAPINE FUMARATE
     Indication: SUICIDE ATTEMPT
     Dosage: 125 MG, ONCE
     Route: 048
     Dates: start: 20150324, end: 20150324
  2. ESCITALOPRAM [Suspect]
     Active Substance: ESCITALOPRAM OXALATE
     Indication: SUICIDE ATTEMPT
     Dosage: 100 MG, ONCE
     Route: 048
     Dates: start: 20150324, end: 20150324
  3. ALCOHOL. [Suspect]
     Active Substance: ALCOHOL
     Indication: SUICIDE ATTEMPT
     Dosage: ONE GLASS OF WINE, ONCE
     Route: 048
     Dates: start: 20150324, end: 20150324
  4. REMERON [Suspect]
     Active Substance: MIRTAZAPINE
     Indication: SUICIDE ATTEMPT
     Dosage: 75 MG, ONCE
     Route: 048
     Dates: start: 20150324, end: 20150324

REACTIONS (3)
  - Agitation [Recovering/Resolving]
  - Intentional overdose [Recovered/Resolved]
  - Coma [Recovering/Resolving]

NARRATIVE: CASE EVENT DATE: 20150324
